FAERS Safety Report 5908448-0 (Version None)
Quarter: 2008Q3

REPORT INFORMATION
  Report Type: 
  Country: None (occurrence: None)
  Receive Date: 20080930
  Receipt Date: 20080919
  Transmission Date: 20090109
  Serious: Yes (Hospitalization)
  Sender: FDA-Public Use
  Company Number: 98193

PATIENT
  Age: 2 Year
  Sex: Male

DRUGS (4)
  1. ACETAMINOPHEN [Suspect]
     Indication: PROPHYLAXIS
     Dosage: 10 MG/KG/Q4 HR/ORAL
     Route: 048
  2. ACETAMINOPHEN [Suspect]
     Indication: PYREXIA
     Dosage: 10 MG/KG/Q4 HR/ORAL
     Route: 048
  3. LORAZEPAM [Concomitant]
  4. CEFOTAXIME SODIUM [Concomitant]

REACTIONS (3)
  - DRUG TOXICITY [None]
  - HEPATIC NECROSIS [None]
  - LETHARGY [None]
